FAERS Safety Report 8479751-8 (Version None)
Quarter: 2012Q2

REPORT INFORMATION
  Report Type: 
  Country: None (occurrence: None)
  Receive Date: 20120620
  Receipt Date: 20120604
  Transmission Date: 20120825
  Serious: Yes (Hospitalization)
  Sender: FDA-Public Use
  Company Number: ACO_30589_2012

PATIENT
  Age: 41 Year
  Sex: Male

DRUGS (2)
  1. TYSABRI [Concomitant]
  2. FAMPRIDINE-SR (FAMPRIDINE) TABLET [Suspect]
     Dosage: 10 MG, BID, ORAL
     Route: 048
     Dates: start: 20120508

REACTIONS (1)
  - ATRIAL FIBRILLATION [None]
